FAERS Safety Report 17814354 (Version 4)
Quarter: 2025Q4

REPORT INFORMATION
  Report Type: Spontaneous
  Country: CA (occurrence: CA)
  Receive Date: 20200522
  Receipt Date: 20251002
  Transmission Date: 20260117
  Serious: Yes (Life-Threatening, Hospitalization)
  Sender: ROCHE
  Company Number: CA-ROCHE-2602482

PATIENT
  Age: 36 Year
  Sex: Male

DRUGS (12)
  1. RITUXIMAB [Suspect]
     Active Substance: RITUXIMAB
     Indication: Thrombotic thrombocytopenic purpura
     Route: 065
  2. RITUXIMAB [Suspect]
     Active Substance: RITUXIMAB
     Indication: Immunosuppressant drug therapy
     Route: 065
  3. RITUXIMAB [Suspect]
     Active Substance: RITUXIMAB
     Indication: Thrombotic thrombocytopenic purpura
     Route: 042
  4. METHYLPREDNISOLONE [Suspect]
     Active Substance: METHYLPREDNISOLONE
     Indication: Thrombotic thrombocytopenic purpura
     Route: 065
  5. METHYLPREDNISOLONE [Suspect]
     Active Substance: METHYLPREDNISOLONE
     Indication: Immunosuppressant drug therapy
  6. CYCLOSPORINE [Suspect]
     Active Substance: CYCLOSPORINE
     Indication: Thrombotic thrombocytopenic purpura
     Route: 048
  7. BORTEZOMIB [Suspect]
     Active Substance: BORTEZOMIB
     Indication: Thrombotic thrombocytopenic purpura
     Route: 042
  8. BORTEZOMIB [Suspect]
     Active Substance: BORTEZOMIB
     Indication: Immunosuppressant drug therapy
     Route: 042
  9. CYCLOPHOSPHAMIDE [Suspect]
     Active Substance: CYCLOPHOSPHAMIDE
     Indication: Product used for unknown indication
     Route: 042
  10. ACITRETIN [Concomitant]
     Active Substance: ACITRETIN
     Indication: Psoriasis
  11. ACETYLCYSTEINE [Concomitant]
     Active Substance: ACETYLCYSTEINE
     Route: 042
  12. ACITRETIN [Concomitant]
     Active Substance: ACITRETIN
     Indication: Product used for unknown indication
     Route: 065

REACTIONS (22)
  - Abdominal abscess [Unknown]
  - Device related sepsis [Unknown]
  - Empyema [Unknown]
  - Vascular device infection [Unknown]
  - Treatment failure [Unknown]
  - Thrombotic thrombocytopenic purpura [Unknown]
  - Staphylococcal sepsis [Unknown]
  - Staphylococcal bacteraemia [Unknown]
  - Sepsis [Unknown]
  - Klebsiella infection [Unknown]
  - Intentional product misuse [Unknown]
  - Enterococcal infection [Unknown]
  - Drug ineffective [Unknown]
  - Device related infection [Unknown]
  - Clostridium difficile infection [Unknown]
  - Cerebrovascular accident [Unknown]
  - Brain oedema [Unknown]
  - Candida infection [Unknown]
  - Drug ineffective for unapproved indication [Unknown]
  - Bacteraemia [Unknown]
  - Hemianopia [Unknown]
  - Muscular weakness [Unknown]
